FAERS Safety Report 6231038-X (Version None)
Quarter: 2009Q2

REPORT INFORMATION
  Report Type: 
  Country: None (occurrence: None)
  Receive Date: 20090616
  Receipt Date: 20090611
  Transmission Date: 20091009
  Serious: Yes (Death, Hospitalization)
  Sender: FDA-Public Use
  Company Number: PHHO2009FR06681

PATIENT
  Sex: Male

DRUGS (5)
  1. RAD 666 RAD+TAB [Suspect]
     Indication: NEUROENDOCRINE TUMOUR
     Dosage: 10 MG
     Route: 048
     Dates: start: 20090310, end: 20090524
  2. PERINDOPRIL ERBUMINE [Concomitant]
  3. LOVENOX [Concomitant]
  4. AUGMENTIN [Concomitant]
  5. ATROVENT [Concomitant]

REACTIONS (2)
  - CARDIOGENIC SHOCK [None]
  - DYSPNOEA [None]
